FAERS Safety Report 16169696 (Version 4)
Quarter: 2020Q3

REPORT INFORMATION
  Report Type: Report from Study
  Country: DE (occurrence: DE)
  Receive Date: 20190408
  Receipt Date: 20200817
  Transmission Date: 20201102
  Serious: Yes (Hospitalization)
  Sender: FDA-Public Use
  Company Number: DE-MYLANLABS-2019M1030928

PATIENT
  Age: 84 Year
  Sex: Male
  Weight: 66 kg

DRUGS (19)
  1. EXJADE [Suspect]
     Active Substance: DEFERASIROX
     Indication: IRON OVERLOAD
     Dosage: UNK
     Route: 065
     Dates: start: 20180801, end: 20180913
  2. EXJADE [Suspect]
     Active Substance: DEFERASIROX
     Dosage: 360 MG, QD (6MG/KG BODYWEIGHT/DAY)
     Route: 065
     Dates: start: 20180104, end: 20180121
  3. TOREM                              /01036501/ [Concomitant]
     Active Substance: TORSEMIDE
     Dosage: 20 MILLIGRAM
     Route: 065
     Dates: start: 20180507, end: 20180607
  4. EXJADE [Suspect]
     Active Substance: DEFERASIROX
     Dosage: 360 MG, BID (11MG/KG BODYWEIGHT/DAY)
     Route: 065
     Dates: start: 20171113, end: 20171210
  5. EXJADE [Suspect]
     Active Substance: DEFERASIROX
     Dosage: 360 MG (REINTRODUCTION AFTER INTERRUPTION; 11MG/KG BODYWEIGHT/DAY=2 TABLETS ? 360MG)
     Route: 065
     Dates: start: 20180924, end: 20181012
  6. TOREM                              /01036501/ [Concomitant]
     Active Substance: TORSEMIDE
     Indication: HYPERTENSION
     Dosage: 10 MILLIGRAM, QD
     Route: 065
     Dates: start: 20180506
  7. ISMN [Concomitant]
     Active Substance: ISOSORBIDE MONONITRATE
     Indication: PROPHYLAXIS
     Dosage: 60 MILLIGRAM, QD
     Route: 065
  8. SPIRONOLACTONE. [Concomitant]
     Active Substance: SPIRONOLACTONE
     Indication: HYPERTENSION
     Dosage: 25 MILLIGRAM, QD
     Route: 065
     Dates: start: 20180608
  9. EXJADE [Suspect]
     Active Substance: DEFERASIROX
     Dosage: UNK
     Route: 065
  10. CLOPIDOGREL [Suspect]
     Active Substance: CLOPIDOGREL BISULFATE
     Indication: PULMONARY HYPERTENSION
     Dosage: 75 MILLIGRAM, QD
     Route: 065
  11. FLUVASTATIN [Concomitant]
     Active Substance: FLUVASTATIN SODIUM
     Indication: HYPERCHOLESTEROLAEMIA
     Dosage: 80 MILLIGRAM, QD
     Route: 065
     Dates: start: 20180607
  12. EXJADE [Suspect]
     Active Substance: DEFERASIROX
     Dosage: 360 MG, BID (11MG/KG BODYWEIGHT/DAY)
     Route: 065
     Dates: start: 20180122, end: 20180731
  13. PRAVASTATIN. [Concomitant]
     Active Substance: PRAVASTATIN
     Indication: HYPERCHOLESTEROLAEMIA
     Dosage: 40 MILLIGRAM, QD
     Route: 065
     Dates: start: 20180608
  14. TOREM                              /01036501/ [Concomitant]
     Active Substance: TORSEMIDE
     Dosage: 30 MILLIGRAM
     Route: 065
     Dates: start: 20180608
  15. BISOPROLOL [Concomitant]
     Active Substance: BISOPROLOL
     Indication: HYPERTENSION
     Dosage: 5 MILLIGRAM, QD
     Route: 065
  16. RAMIPRIL. [Concomitant]
     Active Substance: RAMIPRIL
     Indication: HYPERTENSION
     Dosage: 5 MILLIGRAM, QD
     Route: 065
  17. ALDACTONE [Concomitant]
     Active Substance: SPIRONOLACTONE
     Indication: HYPERTENSION
     Dosage: 50 MILLIGRAM, QD
     Route: 065
     Dates: start: 20180509, end: 20180607
  18. EXJADE [Suspect]
     Active Substance: DEFERASIROX
     Dosage: 360 MG, QID (22MG/KG BODYWEIGHT/DAY)
     Route: 065
     Dates: start: 20171211, end: 20171222
  19. EXJADE [Suspect]
     Active Substance: DEFERASIROX
     Dosage: UNK
     Route: 065
     Dates: start: 20171223, end: 20180103

REACTIONS (6)
  - Nausea [Recovered/Resolved]
  - Haematuria [Recovered/Resolved]
  - Dyspnoea [Recovering/Resolving]
  - Decreased appetite [Recovered/Resolved]
  - Diarrhoea [Recovered/Resolved]
  - Oedema peripheral [Recovered/Resolved]

NARRATIVE: CASE EVENT DATE: 20171212
